FAERS Safety Report 8060235-6 (Version None)
Quarter: 2012Q1

REPORT INFORMATION
  Report Type: 
  Country: None (occurrence: None)
  Receive Date: 20120119
  Receipt Date: 20120119
  Transmission Date: 20120608
  Serious: Yes (Hospitalization)
  Sender: FDA-Public Use
  Company Number: None

PATIENT
  Age: 73 Year
  Sex: Male
  Weight: 71.1 kg

DRUGS (16)
  1. SYMBICORT [Concomitant]
  2. FLUOCINONIDE [Concomitant]
  3. DUONEB [Concomitant]
  4. LORATADINE [Concomitant]
  5. MECLIZINE [Concomitant]
  6. LASIX [Concomitant]
  7. CLOBETASOL [Concomitant]
  8. FLEXERIL [Concomitant]
  9. NAPROXEN (ALEVE) [Suspect]
     Indication: BACK PAIN
     Dosage: 2 TABS QAM } QPM PO RECENT
     Route: 048
  10. SPIRIVA [Concomitant]
  11. MUCINEX DM [Concomitant]
  12. ATROVENT HFA [Concomitant]
  13. SINGULAIR [Concomitant]
  14. TRIAMCINOLONE [Concomitant]
  15. PERCOCET [Concomitant]
  16. EXELON [Concomitant]

REACTIONS (1)
  - COLITIS ISCHAEMIC [None]
